FAERS Safety Report 5651666-X (Version None)
Quarter: 2008Q1

REPORT INFORMATION
  Report Type: 
  Country: None (occurrence: None)
  Receive Date: 20080305
  Receipt Date: 20080227
  Transmission Date: 20080703
  Serious: Yes (Death, Other)
  Sender: FDA-Public Use
  Company Number: FR-AVENTIS-200810875FR

PATIENT
  Age: 51 Year
  Sex: Male

DRUGS (15)
  1. LANTUS [Suspect]
     Indication: TYPE 2 DIABETES MELLITUS
     Route: 058
  2. CALCIPARINE [Suspect]
     Indication: THROMBOSIS PROPHYLAXIS
     Route: 058
  3. AMBISOME [Suspect]
     Indication: MUCORMYCOSIS
     Route: 042
     Dates: start: 20070831, end: 20070904
  4. AMBISOME [Suspect]
     Route: 042
     Dates: start: 20070907, end: 20070911
  5. AMBISOME [Suspect]
     Route: 042
     Dates: start: 20070912, end: 20070914
  6. AMBISOME [Suspect]
     Route: 042
     Dates: start: 20070917, end: 20070918
  7. AMBISOME [Suspect]
     Route: 042
     Dates: start: 20070919, end: 20070922
  8. AMBISOME [Suspect]
     Route: 042
     Dates: start: 20070928, end: 20080105
  9. COVERSYL                           /00790701/ [Suspect]
     Route: 048
     Dates: start: 20070921, end: 20070923
  10. ACTRAPID [Suspect]
     Indication: TYPE 2 DIABETES MELLITUS
     Route: 058
     Dates: start: 20070905
  11. TIENAM [Suspect]
     Route: 042
  12. OMEPRAZOLE [Suspect]
     Route: 042
  13. LOXEN [Concomitant]
     Indication: HYPERTENSION
     Route: 048
     Dates: start: 20070905
  14. SECTRAL [Concomitant]
     Indication: HYPERTENSION
     Route: 048
     Dates: start: 20070910
  15. EUPRESSYL                          /00631801/ [Concomitant]
     Indication: HYPERTENSION
     Route: 048
     Dates: start: 20070913

REACTIONS (10)
  - AUTONOMIC NERVOUS SYSTEM IMBALANCE [None]
  - CARDIO-RESPIRATORY ARREST [None]
  - CEREBRAL FUNGAL INFECTION [None]
  - DYSPHAGIA [None]
  - FACIAL PALSY [None]
  - HYPOACUSIS [None]
  - MUCORMYCOSIS [None]
  - RENAL FAILURE [None]
  - RENAL FAILURE ACUTE [None]
  - SINUSITIS FUNGAL [None]
